FAERS Safety Report 11282088 (Version 3)
Quarter: 2015Q4

REPORT INFORMATION
  Report Type: Report from Study
  Country: PR (occurrence: PR)
  Receive Date: 20150719
  Receipt Date: 20151217
  Transmission Date: 20160304
  Serious: Yes (Death)
  Sender: FDA-Public Use
  Company Number: PR-ABBVIE-15P-131-1425330-00

PATIENT
  Sex: Female

DRUGS (4)
  1. NORVIR [Suspect]
     Active Substance: RITONAVIR
     Indication: MATERNAL EXPOSURE TIMING UNSPECIFIED
     Dosage: COURSE 1
     Route: 064
  2. EPZICOM [Suspect]
     Active Substance: ABACAVIR SULFATE\LAMIVUDINE
     Indication: MATERNAL EXPOSURE TIMING UNSPECIFIED
     Dosage: COURSE 1
     Route: 064
  3. EMTRICITABINE W/TENOFOVIR DISOPROXIL FUMARATE [Suspect]
     Active Substance: EMTRICITABINE\TENOFOVIR DISOPROXIL
     Indication: MATERNAL EXPOSURE TIMING UNSPECIFIED
     Dosage: COURSE 1
     Route: 064
  4. PREZISTA [Suspect]
     Active Substance: DARUNAVIR ETHANOLATE
     Indication: MATERNAL EXPOSURE TIMING UNSPECIFIED
     Dosage: COURSE 1
     Route: 064

REACTIONS (3)
  - Umbilical cord prolapse [Fatal]
  - Stillbirth [Fatal]
  - Foetal exposure during pregnancy [Unknown]
